FAERS Safety Report 4768256-3 (Version None)
Quarter: 2005Q3

REPORT INFORMATION
  Report Type: 
  Country: None (occurrence: None)
  Receive Date: 20050913
  Receipt Date: 20050901
  Transmission Date: 20060218
  Serious: Yes (Hospitalization)
  Sender: FDA-Public Use
  Company Number: GXKR2005DE01532

PATIENT
  Age: 81 Year
  Sex: Female

DRUGS (6)
  1. CITALOPRAM (NGX) (CITALOPRAM) UNKNOWN [Suspect]
     Indication: DEPRESSION
  2. AMITRIPTYLINE HCL [Suspect]
  3. BISOPROLOL (BISOPROLOL) [Concomitant]
  4. RAMIPRIL [Concomitant]
  5. AMLODIPINE [Concomitant]
  6. MOXONIDINE (MOXONIDINE) [Concomitant]

REACTIONS (7)
  - CONFUSIONAL STATE [None]
  - DRUG INTERACTION [None]
  - INAPPROPRIATE ANTIDIURETIC HORMONE SECRETION [None]
  - ORAL INTAKE REDUCED [None]
  - SOMNOLENCE [None]
  - STUPOR [None]
  - VOMITING [None]
